FAERS Safety Report 6343187-6 (Version None)
Quarter: 2009Q3

REPORT INFORMATION
  Report Type: 
  Country: None (occurrence: None)
  Receive Date: 20090821
  Receipt Date: 20090512
  Transmission Date: 20100115
  Serious: No
  Sender: FDA-Public Use
  Company Number: 8046215

PATIENT
  Age: 50 Year
  Sex: Male
  Weight: 74.84 kg

DRUGS (1)
  1. CIMZIA [Suspect]
     Indication: CROHN'S DISEASE
     Dosage: 400 MG SC
     Route: 058
     Dates: start: 20090415

REACTIONS (3)
  - MOUTH ULCERATION [None]
  - OEDEMA [None]
  - SWELLING FACE [None]
